FAERS Safety Report 23425896 (Version 1)
Quarter: 2024Q1

REPORT INFORMATION
  Report Type: Spontaneous
  Country: US (occurrence: None)
  Receive Date: 20240122
  Receipt Date: 20240122
  Transmission Date: 20240409
  Serious: Yes (Hospitalization)
  Sender: FDA-Public Use
  Company Number: US-ROCHE-3494027

PATIENT
  Sex: Female

DRUGS (3)
  1. ALECENSA [Suspect]
     Active Substance: ALECTINIB HYDROCHLORIDE
     Indication: Lung neoplasm malignant
     Dosage: NO
     Route: 065
     Dates: end: 202312
  2. LORLATINIB [Concomitant]
     Active Substance: LORLATINIB
     Indication: Metastases to meninges
     Dosage: ONGOING YES
     Dates: start: 202312
  3. TYMLOS [Concomitant]
     Active Substance: ABALOPARATIDE
     Indication: Osteoporosis
     Dosage: ONGOING YES
     Dates: start: 2023

REACTIONS (4)
  - Metastases to meninges [Unknown]
  - Brain fog [Unknown]
  - Cognitive disorder [Recovered/Resolved]
  - Fatigue [Recovered/Resolved]

NARRATIVE: CASE EVENT DATE: 20231201
